FAERS Safety Report 13830097 (Version 1)
Quarter: 2017Q3

REPORT INFORMATION
  Report Type: Report from Study
  Country: US (occurrence: US)
  Receive Date: 20170803
  Receipt Date: 20170803
  Transmission Date: 20171127
  Serious: Yes (Other)
  Sender: FDA-Public Use
  Company Number: US-MYLANLABS-2017M1047267

PATIENT

DRUGS (3)
  1. INIPARIB [Suspect]
     Active Substance: INIPARIB
     Indication: TRIPLE NEGATIVE BREAST CANCER
     Route: 042
  2. CARBOPLATIN. [Suspect]
     Active Substance: CARBOPLATIN
     Indication: TRIPLE NEGATIVE BREAST CANCER
     Route: 042
  3. GEMCITABINE [Suspect]
     Active Substance: GEMCITABINE\GEMCITABINE HYDROCHLORIDE
     Indication: TRIPLE NEGATIVE BREAST CANCER
     Route: 042

REACTIONS (3)
  - BRCA1 gene mutation [Unknown]
  - Treatment failure [Unknown]
  - Multiple-drug resistance [Unknown]
